FAERS Safety Report 20085981 (Version 1)
Quarter: 2021Q4

REPORT INFORMATION
  Report Type: Spontaneous
  Country: US (occurrence: None)
  Receive Date: 20211117
  Receipt Date: 20211117
  Transmission Date: 20220303
  Serious: No
  Sender: FDA-Public Use
  Company Number: None

PATIENT
  Age: 74 Year
  Sex: Female

DRUGS (1)
  1. THALOMID [Suspect]
     Active Substance: THALIDOMIDE
     Indication: Arteriovenous malformation
     Dosage: FREQUENCY : DAILY;?
     Route: 048
     Dates: start: 20211118

REACTIONS (3)
  - Off label use [None]
  - Small intestinal haemorrhage [None]
  - Angiodysplasia [None]

NARRATIVE: CASE EVENT DATE: 20211116
